FAERS Safety Report 21116925 (Version 2)
Quarter: 2022Q3

REPORT INFORMATION
  Report Type: Spontaneous
  Country: US (occurrence: US)
  Receive Date: 20220722
  Receipt Date: 20220804
  Transmission Date: 20221027
  Serious: Yes (Other)
  Sender: FDA-Public Use
  Company Number: US-TEVA-2022-US-2055558

PATIENT
  Age: 17 Year
  Sex: Male

DRUGS (12)
  1. DOXORUBICIN [Suspect]
     Active Substance: DOXORUBICIN
     Indication: Hodgkin^s disease
     Route: 050
  2. DOXORUBICIN [Suspect]
     Active Substance: DOXORUBICIN
     Indication: Epstein-Barr virus associated lymphoma
     Dosage: DOSE REDUCED
     Route: 050
  3. VINCRISTINE [Concomitant]
     Active Substance: VINCRISTINE
     Indication: Hodgkin^s disease
     Route: 050
  4. VINCRISTINE [Concomitant]
     Active Substance: VINCRISTINE
     Indication: Epstein-Barr virus associated lymphoma
  5. ETOPOSIDE [Concomitant]
     Active Substance: ETOPOSIDE
     Indication: Hodgkin^s disease
     Route: 050
  6. ETOPOSIDE [Concomitant]
     Active Substance: ETOPOSIDE
     Indication: Epstein-Barr virus associated lymphoma
  7. CYCLOPHOSPHAMIDE [Concomitant]
     Active Substance: CYCLOPHOSPHAMIDE
     Indication: Hodgkin^s disease
     Route: 050
  8. CYCLOPHOSPHAMIDE [Concomitant]
     Active Substance: CYCLOPHOSPHAMIDE
     Indication: Epstein-Barr virus associated lymphoma
  9. RITUXIMAB [Concomitant]
     Active Substance: RITUXIMAB
     Indication: Hodgkin^s disease
     Route: 050
  10. RITUXIMAB [Concomitant]
     Active Substance: RITUXIMAB
     Indication: Epstein-Barr virus associated lymphoma
  11. PREDNISONE [Concomitant]
     Active Substance: PREDNISONE
     Indication: Hodgkin^s disease
     Route: 050
  12. PREDNISONE [Concomitant]
     Active Substance: PREDNISONE
     Indication: Epstein-Barr virus associated lymphoma

REACTIONS (1)
  - Univentricular heart [Recovered/Resolved]
